FAERS Safety Report 8311040 (Version 2)
Quarter: 2013Q2

REPORT INFORMATION
  Report Type: Spontaneous
  Country: US (occurrence: None)
  Receive Date: 20111123
  Receipt Date: 20120525
  Transmission Date: 20140414
  Serious: Yes (Hospitalization)
  Sender: FDA-Public Use
  Company Number: 337119

PATIENT
  Age: 58 Year
  Sex: Male
  Weight: 187.8 kg

DRUGS (6)
  1. VICTOZA [Suspect]
     Indication: DIABETES MELLITUS
     Dosage: 1.8 MG,QD , SUBCUTANEOUS
     Route: 058
     Dates: start: 20100507, end: 20111007
  2. ACTOS [Concomitant]
  3. METFORMIN (METFORMIN) [Concomitant]
  4. LOTREL (AMLODIPINE BESILATE, BENAZEPRIL HYDROCHLORIDE) [Concomitant]
  5. LASIX                   /00032601/ (FUROSEMIDE) [Concomitant]
  6. TOPROL (METOPROLOL SUCCINATE) [Concomitant]

REACTIONS (1)
  - PANCREATITIS ACUTE [None]
